FAERS Safety Report 12547079 (Version 2)
Quarter: 2016Q3

REPORT INFORMATION
  Report Type: Report from Study
  Country: US (occurrence: US)
  Receive Date: 20160711
  Receipt Date: 20160728
  Transmission Date: 20161109
  Serious: Yes (Hospitalization)
  Sender: FDA-Public Use
  Company Number: US-VERTEX PHARMACEUTICALS-2016-003158

PATIENT
  Age: 56 Year
  Sex: Male

DRUGS (1)
  1. ORKAMBI [Suspect]
     Active Substance: IVACAFTOR\LUMACAFTOR
     Indication: CYSTIC FIBROSIS
     Dosage: UNK
     Route: 048
     Dates: start: 20160510

REACTIONS (6)
  - Environmental exposure [None]
  - Hospitalisation [Recovering/Resolving]
  - Upper respiratory tract congestion [Unknown]
  - Respiratory tract congestion [Unknown]
  - Malaise [Unknown]
  - Condition aggravated [None]

NARRATIVE: CASE EVENT DATE: 2016
